FAERS Safety Report 8799644 (Version 1)
Quarter: 2012Q4

REPORT INFORMATION
  Report Type: 
  Country: US (occurrence: US)
  Receive Date: 20120919
  Receipt Date: 20120919
  Transmission Date: 20130627
  Serious: No
  Sender: FDA-Public Use
  Company Number: US-BAYER-2012-097089

PATIENT
  Age: 59 Year
  Sex: Male

DRUGS (1)
  1. ULTRAVIST [Suspect]
     Indication: UROGRAM
     Dosage: 140 ml, ONCE
     Route: 042

REACTIONS (1)
  - Urticaria [Recovered/Resolved]
